FAERS Safety Report 8952975 (Version 1)
Quarter: 2012Q4

REPORT INFORMATION
  Report Type: Report from Study
  Country: DE (occurrence: DE)
  Receive Date: 20121203
  Receipt Date: 20121203
  Transmission Date: 20130627
  Serious: Yes (Hospitalization)
  Sender: FDA-Public Use
  Company Number: DE-ROCHE-1147769

PATIENT
  Age: 45 Year
  Sex: Female
  Weight: 63 kg

DRUGS (3)
  1. CAPECITABINE [Suspect]
     Indication: BREAST CANCER
     Dosage: LAST DOSE:14/OCT/2012
     Route: 065
     Dates: start: 20120915
  2. BEVACIZUMAB [Suspect]
     Indication: BREAST CANCER
     Dosage: LAST DOSE:05/OCT/2012
     Route: 065
     Dates: start: 20120914
  3. VINORELBINE [Suspect]
     Indication: BREAST CANCER
     Dosage: LAST DOSE:15/OCT/2012
     Route: 065
     Dates: start: 20120914

REACTIONS (2)
  - General physical health deterioration [Recovered/Resolved]
  - Diarrhoea [Recovered/Resolved]
